FAERS Safety Report 20224278 (Version 8)
Quarter: 2023Q4

REPORT INFORMATION
  Report Type: Spontaneous
  Country: US (occurrence: US)
  Receive Date: 20211223
  Receipt Date: 20231019
  Transmission Date: 20240110
  Serious: Yes (Other)
  Sender: FDA-Public Use
  Company Number: US-GILEAD-2021-0561994

PATIENT
  Age: 63 Year
  Sex: Female
  Weight: 70.295 kg

DRUGS (15)
  1. VIREAD [Suspect]
     Active Substance: TENOFOVIR DISOPROXIL FUMARATE
     Indication: HIV infection
     Dosage: UNK
     Route: 048
     Dates: start: 2005
  2. VIREAD [Suspect]
     Active Substance: TENOFOVIR DISOPROXIL FUMARATE
     Dosage: UNK
     Route: 048
     Dates: start: 2003, end: 201401
  3. TRUVADA [Interacting]
     Active Substance: EMTRICITABINE\TENOFOVIR DISOPROXIL FUMARATE
     Indication: HIV infection
     Dosage: UNK
     Route: 048
     Dates: start: 2005
  4. TRUVADA [Interacting]
     Active Substance: EMTRICITABINE\TENOFOVIR DISOPROXIL FUMARATE
     Dosage: UNK
     Route: 048
     Dates: start: 201402, end: 201710
  5. BIKTARVY [Concomitant]
     Active Substance: BICTEGRAVIR SODIUM\EMTRICITABINE\TENOFOVIR ALAFENAMIDE FUMARATE
  6. DESCOVY [Concomitant]
     Active Substance: EMTRICITABINE\TENOFOVIR ALAFENAMIDE FUMARATE
  7. COMBIVIR [Concomitant]
     Active Substance: LAMIVUDINE\ZIDOVUDINE
  8. ISENTRESS [Concomitant]
     Active Substance: RALTEGRAVIR POTASSIUM
  9. KALETRA [Concomitant]
     Active Substance: LOPINAVIR\RITONAVIR
  10. NORVIR [Concomitant]
     Active Substance: RITONAVIR
  11. REYATAZ [Concomitant]
     Active Substance: ATAZANAVIR SULFATE
  12. SUSTIVA [Concomitant]
     Active Substance: EFAVIRENZ
  13. TIVICAY [Concomitant]
     Active Substance: DOLUTEGRAVIR SODIUM
  14. VIDEX [Concomitant]
     Active Substance: DIDANOSINE
  15. DOXEPIN [Concomitant]
     Active Substance: DOXEPIN

REACTIONS (22)
  - Osteoporosis [Not Recovered/Not Resolved]
  - Humerus fracture [Not Recovered/Not Resolved]
  - Lower limb fracture [Not Recovered/Not Resolved]
  - Upper limb fracture [Unknown]
  - Hand fracture [Not Recovered/Not Resolved]
  - Foot fracture [Not Recovered/Not Resolved]
  - Tibia fracture [Not Recovered/Not Resolved]
  - Limb immobilisation [Not Recovered/Not Resolved]
  - Bone demineralisation [Unknown]
  - Pain [Not Recovered/Not Resolved]
  - Emotional distress [Not Recovered/Not Resolved]
  - Anxiety [Not Recovered/Not Resolved]
  - Anhedonia [Not Recovered/Not Resolved]
  - Fall [Unknown]
  - Spinal osteoarthritis [Unknown]
  - Joint contracture [Unknown]
  - Neuralgia [Not Recovered/Not Resolved]
  - Pain in extremity [Not Recovered/Not Resolved]
  - Skeletal injury [Unknown]
  - Loss of personal independence in daily activities [Not Recovered/Not Resolved]
  - Drug interaction [Recovered/Resolved]
  - Osteopenia [Not Recovered/Not Resolved]

NARRATIVE: CASE EVENT DATE: 20080701
